FAERS Safety Report 23375158 (Version 1)
Quarter: 2024Q1

REPORT INFORMATION
  Report Type: Spontaneous
  Country: US (occurrence: US)
  Receive Date: 20240106
  Receipt Date: 20240106
  Transmission Date: 20240410
  Serious: No
  Sender: FDA-Public Use
  Company Number: US-JNJFOC-20231268559

PATIENT
  Sex: Male

DRUGS (2)
  1. ROGAINE [Suspect]
     Active Substance: MINOXIDIL
     Indication: Alopecia
     Route: 061
  2. MINOXIDIL [Concomitant]
     Active Substance: MINOXIDIL
     Indication: Alopecia
     Route: 048

REACTIONS (3)
  - Application site acne [Unknown]
  - Application site pruritus [Unknown]
  - Skin disorder [Unknown]
